FAERS Safety Report 4664535-9 (Version None)
Quarter: 2005Q2

REPORT INFORMATION
  Report Type: 
  Country: None (occurrence: None)
  Receive Date: 20050516
  Receipt Date: 20050516
  Transmission Date: 20051028
  Serious: Yes (Life-Threatening)
  Sender: FDA-Public Use
  Company Number: None

PATIENT
  Age: 45 Year
  Sex: Male
  Weight: 60.3284 kg

DRUGS (1)
  1. DIPHENHYDRAMINE   50 MG [Suspect]
     Indication: TARDIVE DYSKINESIA
     Dosage: 50 MG 4 X DAILY/ ORAL
     Route: 048
     Dates: start: 20040101, end: 20050201

REACTIONS (1)
  - HEPATIC ENZYME INCREASED [None]
